FAERS Safety Report 11247240 (Version 1)
Quarter: 2015Q3

REPORT INFORMATION
  Report Type: Spontaneous
  Country: US (occurrence: None)
  Receive Date: 20150706
  Receipt Date: 20150706
  Transmission Date: 20151125
  Serious: No
  Sender: FDA-Public Use
  Company Number: None

PATIENT

DRUGS (2)
  1. FLUVOXAMINE MALEATE FLUVOXAMINE [Suspect]
     Active Substance: FLUVOXAMINE MALEATE
  2. LISINOPRIL LISINOPRIL [Suspect]
     Active Substance: LISINOPRIL

REACTIONS (1)
  - Drug dispensing error [None]
